FAERS Safety Report 7955196 (Version 2)
Quarter: 2012Q4

REPORT INFORMATION
  Report Type: Report from Study
  Country: PL (occurrence: PL)
  Receive Date: 20110523
  Receipt Date: 20121207
  Transmission Date: 20130627
  Serious: No
  Sender: FDA-Public Use
  Company Number: PL-SANOFI-AVENTIS-2011SA029354

PATIENT
  Age: 70 Year
  Sex: Male
  Weight: 85 kg

DRUGS (12)
  1. BLINDED THERAPY [Suspect]
     Indication: ACUTE CORONARY SYNDROME
     Route: 042
     Dates: start: 20110429, end: 20110429
  2. ASPIRIN [Suspect]
     Indication: ACUTE CORONARY SYNDROME
     Route: 048
     Dates: start: 20110429, end: 20110429
  3. ASPIRIN [Suspect]
     Indication: ACUTE CORONARY SYNDROME
  4. ASPIRIN [Suspect]
     Indication: ACUTE CORONARY SYNDROME
     Route: 048
     Dates: start: 20110430
  5. PLAVIX [Suspect]
     Indication: ACUTE CORONARY SYNDROME
     Route: 048
     Dates: start: 20110429, end: 20110429
  6. PLAVIX [Suspect]
     Indication: ACUTE CORONARY SYNDROME
     Route: 048
     Dates: start: 20110430
  7. PREDUCTAL [Concomitant]
     Dates: start: 20110429
  8. ZOCOR [Concomitant]
     Dates: start: 20110429
  9. TRITACE [Concomitant]
     Dates: start: 20110429, end: 20110430
  10. TRITACE [Concomitant]
     Dates: start: 20110430, end: 20110503
  11. METOPROLOL [Concomitant]
     Dates: start: 20110429, end: 20110430
  12. CLEXANE [Concomitant]
     Route: 058
     Dates: start: 20110430, end: 20110506

REACTIONS (1)
  - Vascular pseudoaneurysm [Recovered/Resolved]
